FAERS Safety Report 15251227 (Version 1)
Quarter: 2018Q3

REPORT INFORMATION
  Report Type: Report from Study
  Country: ES (occurrence: ES)
  Receive Date: 20180807
  Receipt Date: 20180807
  Transmission Date: 20181010
  Serious: Yes (Hospitalization)
  Sender: FDA-Public Use
  Company Number: ES-PFIZER INC-2018312081

PATIENT
  Age: 5 Year
  Sex: Female
  Weight: 17 kg

DRUGS (9)
  1. CYCLOPHOSPHAMIDE. [Suspect]
     Active Substance: CYCLOPHOSPHAMIDE
     Indication: ACUTE LYMPHOCYTIC LEUKAEMIA
     Dosage: 350 MG, 1X/DAY
     Route: 042
     Dates: start: 20170418, end: 20170418
  2. SEPTRIN PAEDIATRIC [Concomitant]
     Active Substance: SULFAMETHOXAZOLE\TRIMETHOPRIM
     Indication: PROPHYLAXIS
     Dosage: 4.5 ML, 1X/DAY
     Route: 048
     Dates: start: 20161031
  3. MESNA. [Concomitant]
     Active Substance: MESNA
     Indication: PROPHYLAXIS
     Dosage: 140 MG, 1X/DAY
     Route: 042
     Dates: start: 20170418, end: 20170418
  4. FORTECORTIN /00016001/ [Suspect]
     Active Substance: DEXAMETHASONE
     Indication: ACUTE LYMPHOCYTIC LEUKAEMIA
     Dosage: 4 MG, 2X/DAY
     Route: 048
     Dates: start: 20170404, end: 20170424
  5. AZITHROMYCIN ANHYDROUS. [Concomitant]
     Active Substance: AZITHROMYCIN ANHYDROUS
     Indication: PROPHYLAXIS
     Dosage: 1720 MEQ, ALTERNATE DAY
     Route: 048
     Dates: start: 20170315
  6. ACICLOVIR [Concomitant]
     Active Substance: ACYCLOVIR
     Indication: PROPHYLAXIS
     Dosage: 160 MG, 3X/DAY
     Route: 048
     Dates: start: 20161128
  7. ONCASPAR [Suspect]
     Active Substance: PEGASPARGASE
     Indication: ACUTE LYMPHOCYTIC LEUKAEMIA
     Dosage: 1700 IU, CYCLIC (EVERY 14 DAY)
     Route: 030
     Dates: start: 20170404, end: 20170418
  8. VINCRISTINE SULFATE. [Suspect]
     Active Substance: VINCRISTINE SULFATE
     Indication: ACUTE LYMPHOCYTIC LEUKAEMIA
     Dosage: 1 MG, WEEKLY
     Route: 042
     Dates: start: 20170404, end: 20170411
  9. DOXORUBICIN HCL [Suspect]
     Active Substance: DOXORUBICIN HYDROCHLORIDE
     Indication: ACUTE LYMPHOCYTIC LEUKAEMIA
     Dosage: 20 MG, WEEKLY
     Route: 042
     Dates: start: 20170404, end: 20170411

REACTIONS (2)
  - Pancytopenia [Recovered/Resolved]
  - Rhinovirus infection [Recovered/Resolved]

NARRATIVE: CASE EVENT DATE: 20170421
